FAERS Safety Report 5322002-3 (Version None)
Quarter: 2007Q2

REPORT INFORMATION
  Report Type: 
  Country: None (occurrence: None)
  Receive Date: 20070511
  Receipt Date: 20070504
  Transmission Date: 20071010
  Serious: Yes (Life-Threatening, Hospitalization, Other)
  Sender: FDA-Public Use
  Company Number: PHEH2007US06223

PATIENT
  Age: 49 Year
  Sex: Female

DRUGS (3)
  1. ZELNORM [Suspect]
     Indication: CONSTIPATION
     Dosage: 6 MG, BID
     Route: 048
     Dates: start: 20020101, end: 20070401
  2. ADVAIR DISKUS 100/50 [Concomitant]
     Indication: ASTHMA
  3. SINGULAIR [Concomitant]
     Indication: ASTHMA

REACTIONS (12)
  - CARDIAC DISORDER [None]
  - CHEST PAIN [None]
  - CHEST X-RAY [None]
  - COUGH [None]
  - DYSPNOEA [None]
  - GASTROOESOPHAGEAL REFLUX DISEASE [None]
  - HEART RATE INCREASED [None]
  - HYPOAESTHESIA [None]
  - OEDEMA PERIPHERAL [None]
  - PNEUMONIA STAPHYLOCOCCAL [None]
  - SCAN [None]
  - STAPHYLOCOCCAL SEPSIS [None]
